FAERS Safety Report 18941180 (Version 2)
Quarter: 2021Q2

REPORT INFORMATION
  Report Type: Spontaneous
  Country: NL (occurrence: FR)
  Receive Date: 20210225
  Receipt Date: 20210622
  Transmission Date: 20210717
  Serious: Yes (Death, Other)
  Sender: FDA-Public Use
  Company Number: FR-FRESENIUS KABI-FK202101771

PATIENT
  Age: 65 Year
  Sex: Female
  Weight: 56 kg

DRUGS (21)
  1. LOPERAMIDE [Concomitant]
     Active Substance: LOPERAMIDE
     Indication: DIARRHOEA
     Route: 048
  2. ZOPICLONE [Concomitant]
     Active Substance: ZOPICLONE
     Indication: INSOMNIA
     Route: 048
  3. GLYCINE/ALANINE/SERINE/TYROSINE/LEUCINE/METHIONINE/PHENYLALANINE/HISTIDINE/VALINE/THREONINE/TRYPTOPH [Concomitant]
     Active Substance: AMINO ACIDS, SOURCE UNSPECIFIED
     Indication: PARENTERAL NUTRITION
     Dosage: UNKNOWN
     Route: 048
  4. LANSOPRAZOLE. [Concomitant]
     Active Substance: LANSOPRAZOLE
     Indication: GASTRITIS
     Route: 048
  5. PAROXETINE. [Concomitant]
     Active Substance: PAROXETINE
     Indication: DEPRESSION
     Dosage: PAROXETINE BASE
     Route: 048
  6. AMPHOTERICIN B. [Concomitant]
     Active Substance: AMPHOTERICIN B
     Indication: ORAL CANDIDIASIS
     Dosage: UNKNOWN
     Route: 048
  7. METHYLPREDNISOLONE. [Suspect]
     Active Substance: METHYLPREDNISOLONE
     Indication: PREMEDICATION
     Route: 048
     Dates: start: 20210107, end: 20210107
  8. RETINOL [Concomitant]
     Active Substance: RETINOL
     Indication: VITAMIN A DEFICIENCY
     Route: 048
  9. COLECALCIFEROL [Concomitant]
     Active Substance: CHOLECALCIFEROL
     Indication: VITAMIN D DEFICIENCY
     Dosage: ZYMAD 200000 UI DRINKABLE SOLUTION IN VIAL
     Route: 048
  10. DEXCHLORPHENIRAMINE MALEATE. [Suspect]
     Active Substance: DEXCHLORPHENIRAMINE MALEATE
     Indication: PREMEDICATION
     Route: 048
     Dates: start: 20210107, end: 20210107
  11. OXYCODONE HYDROCHLORIDE. [Concomitant]
     Active Substance: OXYCODONE HYDROCHLORIDE
     Indication: PAIN
     Dosage: OXYNORMORO 5 MG ORODISPERSIBLE TABLET
     Route: 048
  12. ONDANSETRON [Concomitant]
     Active Substance: ONDANSETRON
     Indication: NAUSEA
     Dosage: ZOPHREN 8 MG LYOPHILISAT ORAL
     Route: 048
  13. PACLITAXEL (MANUFACTURER UNKNOWN) [Suspect]
     Active Substance: PACLITAXEL
     Indication: BREAST CANCER STAGE III
     Route: 042
     Dates: start: 20210107, end: 20210107
  14. RANITIDINE. [Suspect]
     Active Substance: RANITIDINE
     Indication: PREMEDICATION
     Dosage: RANITIDINE BASE
     Route: 048
     Dates: start: 20210107, end: 20210107
  15. TRASTUZUMAB. [Suspect]
     Active Substance: TRASTUZUMAB
     Indication: BREAST CANCER STAGE III
     Route: 042
     Dates: start: 20210107, end: 20210107
  16. HYDROXYZINE HYDROCHLORIDE. [Concomitant]
     Active Substance: HYDROXYZINE HYDROCHLORIDE
     Indication: ANXIETY
     Route: 048
  17. PANCREATIN [Concomitant]
     Active Substance: PANCRELIPASE
     Indication: PANCREATIC FAILURE
     Dosage: CREON 25000 U GASTRORESISTANT GRANULE IN CAPSULE
     Route: 048
  18. SUCROSE/CASEIN/STARCH HYDROLYSED/YEAST DRIED/LACTOPROTEIN/FATS NOS/VITAMINS NOS/ELECTROLYTES NOS [Concomitant]
     Indication: STARVATION
     Dosage: RENUTRYL 500 DRINKABLE EMULSION IN BOX
     Route: 048
  19. FENTANYL. [Concomitant]
     Active Substance: FENTANYL
     Indication: PAIN
     Dosage: DUROGESIC 25 MICROGRAMS/HOUR (4.2 MG/10.5 CM?) TRANSDERMAL DEVICE
     Route: 048
  20. PHLOROGLUCINOL [Concomitant]
     Active Substance: PHLOROGLUCINOL
     Indication: GASTROINTESTINAL DISORDER
     Dosage: SPASFON LYOC 80 MG LYOPHILISAT ORAL
     Route: 048
  21. PARACETAMOL [Concomitant]
     Active Substance: ACETAMINOPHEN
     Indication: PAIN
     Route: 048

REACTIONS (1)
  - Mixed liver injury [Recovering/Resolving]

NARRATIVE: CASE EVENT DATE: 20210114
